FAERS Safety Report 9325549 (Version 8)
Quarter: 2014Q4

REPORT INFORMATION
  Report Type: Report from Study
  Country: BR (occurrence: BR)
  Receive Date: 20130604
  Receipt Date: 20141222
  Transmission Date: 20150529
  Serious: Yes (Life-Threatening, Hospitalization, Other)
  Sender: FDA-Public Use
  Company Number: PHHY2013BR030745

PATIENT
  Age: 67 Year
  Sex: Male
  Weight: 61 kg

DRUGS (21)
  1. XOLAIR [Suspect]
     Active Substance: OMALIZUMAB
     Indication: BLOOD IMMUNOGLOBULIN E
     Dosage: 225 MG,  (1 AMPOULE) EVERY 15 DAYS
     Route: 065
     Dates: start: 2009
  2. ATROGREL [Concomitant]
     Indication: CARDIAC DISORDER
     Dosage: 1 DF, QD
     Route: 048
     Dates: start: 201301
  3. LEVOFLOXACIN. [Concomitant]
     Active Substance: LEVOFLOXACIN
     Indication: LUNG DISORDER
     Dosage: 1 DF, QD
     Route: 065
  4. FORASEQ [Suspect]
     Active Substance: BUDESONIDE\FORMOTEROL FUMARATE
     Indication: LUNG DISORDER
  5. ROSUVASTATIN [Concomitant]
     Active Substance: ROSUVASTATIN
     Indication: PRODUCT USED FOR UNKNOWN INDICATION
     Dosage: 1 DF, AT NIGHT
     Route: 065
     Dates: start: 201301
  6. ALENIA//ESOMEPRAZOLE MAGNESIUM [Concomitant]
     Indication: ASTHMA
     Dosage: 4 DF, QD
     Route: 065
  7. XOLAIR [Suspect]
     Active Substance: OMALIZUMAB
     Dosage: UNK
     Route: 065
  8. PREDNISONE. [Concomitant]
     Active Substance: PREDNISONE
     Indication: ALLERGIC RESPIRATORY DISEASE
     Dosage: 1 DF, PRN
     Route: 048
  9. PREDNISONE. [Concomitant]
     Active Substance: PREDNISONE
     Indication: LUNG DISORDER
  10. MONTELAIR [Concomitant]
     Active Substance: MONTELUKAST SODIUM
     Indication: LUNG DISORDER
     Dosage: 1 DF, QD
     Route: 065
     Dates: start: 1999
  11. CLOPIDOGREL [Suspect]
     Active Substance: CLOPIDOGREL BISULFATE
     Indication: CARDIAC DISORDER
     Dosage: UNK
     Route: 065
  12. MONOCORDIL [Concomitant]
     Active Substance: ISOSORBIDE MONONITRATE
     Indication: CARDIAC DISORDER
     Dosage: 3 DF, 3 TIMES DAILY
     Route: 048
     Dates: start: 20130127
  13. MONTELAIR [Concomitant]
     Active Substance: MONTELUKAST SODIUM
     Indication: ASTHMA
  14. XOLAIR [Suspect]
     Active Substance: OMALIZUMAB
     Indication: HYPERSENSITIVITY
     Dosage: 4 DF, (VIAL)
     Route: 058
  15. ACETYLSALICYLIC ACID [Suspect]
     Active Substance: ASPIRIN
     Indication: CARDIAC DISORDER
     Dosage: 2 DF, AT LUNCH
     Route: 048
     Dates: start: 201301
  16. ROSUVASTATIN CALCIUM. [Concomitant]
     Active Substance: ROSUVASTATIN CALCIUM
     Indication: BLOOD CHOLESTEROL
     Dosage: 1 DF, QD
     Route: 048
     Dates: start: 201301
  17. AEROLIN [Concomitant]
     Active Substance: ALBUTEROL
     Indication: LUNG DISORDER
     Dosage: UNK UKN, UNK
     Route: 065
     Dates: start: 2012
  18. AEROLIN [Concomitant]
     Active Substance: ALBUTEROL
     Indication: ASTHMA
  19. OMEPRAZOLE. [Concomitant]
     Active Substance: OMEPRAZOLE
     Indication: GASTROINTESTINAL DISORDER
     Route: 065
  20. XOLAIR [Suspect]
     Active Substance: OMALIZUMAB
     Indication: ASTHMA
     Dosage: 1.5 DF, (1 AND HALF AMPOULE) EVERY 15 DAYS
     Route: 065
  21. FORASEQ [Suspect]
     Active Substance: BUDESONIDE\FORMOTEROL FUMARATE
     Indication: ASTHMA
     Dosage: 2 DF, QD (EVERY 12 HOURS, MORNING AND NIGHT)
     Route: 065

REACTIONS (35)
  - Haemorrhage [Unknown]
  - Speech disorder [Not Recovered/Not Resolved]
  - Hypersensitivity [Not Recovered/Not Resolved]
  - Haematochezia [Unknown]
  - Cardiac disorder [Not Recovered/Not Resolved]
  - Weight decreased [Not Recovered/Not Resolved]
  - Ear discomfort [Recovering/Resolving]
  - Wheezing [Recovering/Resolving]
  - Visual impairment [Not Recovered/Not Resolved]
  - Fumbling [Unknown]
  - Terminal state [Recovering/Resolving]
  - Dysphagia [Not Recovered/Not Resolved]
  - Fatigue [Not Recovered/Not Resolved]
  - Dyspnoea [Recovering/Resolving]
  - Gait disturbance [Not Recovered/Not Resolved]
  - Lung disorder [Unknown]
  - Asthma [Recovering/Resolving]
  - Dyspepsia [Recovering/Resolving]
  - Infarction [Recovered/Resolved]
  - Asthenia [Not Recovered/Not Resolved]
  - Throat tightness [Not Recovered/Not Resolved]
  - Diverticulitis [Unknown]
  - Yellow skin [Unknown]
  - Diabetes mellitus [Not Recovered/Not Resolved]
  - Asthmatic crisis [Not Recovered/Not Resolved]
  - Memory impairment [Not Recovered/Not Resolved]
  - Blood pressure decreased [Recovering/Resolving]
  - Hearing impaired [Not Recovered/Not Resolved]
  - Ear infection [Recovering/Resolving]
  - Head discomfort [Unknown]
  - Multiple allergies [Unknown]
  - Dysentery [Unknown]
  - Aortic disorder [Not Recovered/Not Resolved]
  - Stress [Not Recovered/Not Resolved]
  - Drug ineffective [Not Recovered/Not Resolved]

NARRATIVE: CASE EVENT DATE: 2013
